FAERS Safety Report 4717714-6 (Version None)
Quarter: 2005Q3

REPORT INFORMATION
  Report Type: 
  Country: None (occurrence: None)
  Receive Date: 20050715
  Receipt Date: 20050706
  Transmission Date: 20060218
  Serious: Yes (Life-Threatening, Hospitalization)
  Sender: FDA-Public Use
  Company Number: 2005-02415

PATIENT
  Age: 57 Year
  Sex: Female

DRUGS (2)
  1. VECURONIUM BROMIDE [Suspect]
     Indication: ANAESTHESIA
     Dosage: 10 MG,
  2. FENTANYL CITRATE [Suspect]
     Indication: ANAESTHESIA
     Dosage: 250 U/G

REACTIONS (3)
  - CIRCULATORY COLLAPSE [None]
  - ELECTROMECHANICAL DISSOCIATION [None]
  - MYOCARDIAL RUPTURE [None]
